FAERS Safety Report 7298726-8 (Version None)
Quarter: 2011Q1

REPORT INFORMATION
  Report Type: 
  Country: None (occurrence: None)
  Receive Date: 20110209
  Receipt Date: 20110125
  Transmission Date: 20110831
  Serious: Yes (Other)
  Sender: FDA-Public Use
  Company Number: AUR-APL-2011-00317

PATIENT
  Age: 50 Year
  Sex: Female

DRUGS (7)
  1. METFORMIN [Concomitant]
  2. SERETIDE (FLUTICASONE/SALMETEROL) [Concomitant]
  3. RAMIPRIL [Concomitant]
  4. VENTOLIN [Concomitant]
  5. AMLODIPINE [Concomitant]
  6. SIMVASTATIN [Suspect]
     Indication: DIABETES MELLITUS
     Dosage: 40MG-DAILY-
     Dates: start: 20101008, end: 20101104
  7. BENDROFLUMETHIAZIDE [Concomitant]

REACTIONS (1)
  - VISUAL ACUITY REDUCED [None]
